FAERS Safety Report 20838058 (Version 2)
Quarter: 2022Q2

REPORT INFORMATION
  Report Type: Spontaneous
  Country: JP (occurrence: JP)
  Receive Date: 20220517
  Receipt Date: 20220601
  Transmission Date: 20220721
  Serious: Yes (Other)
  Sender: FDA-Public Use
  Company Number: JP-GE HEALTHCARE-2022JSU003224

PATIENT
  Age: 49 Year
  Sex: Female
  Weight: 163.5 kg

DRUGS (2)
  1. OMNIPAQUE [Suspect]
     Active Substance: IOHEXOL
     Indication: Computerised tomogram
     Dosage: 65 ML, SINGLE
     Route: 041
     Dates: start: 20220428, end: 20220428
  2. OMNIPAQUE [Suspect]
     Active Substance: IOHEXOL
     Indication: Metastases to peritoneum

REACTIONS (1)
  - Contrast media allergy [Recovered/Resolved]

NARRATIVE: CASE EVENT DATE: 20220428
